FAERS Safety Report 9356658 (Version 1)
Quarter: 2013Q2

REPORT INFORMATION
  Report Type: Spontaneous
  Country: FR (occurrence: FR)
  Receive Date: 20130619
  Receipt Date: 20130619
  Transmission Date: 20140414
  Serious: Yes (Other)
  Sender: FDA-Public Use
  Company Number: FR-MYLANLABS-2013S1012708

PATIENT
  Age: 74 Year
  Sex: Male

DRUGS (6)
  1. LEVETIRACETAM [Suspect]
     Indication: EPILEPSY
     Route: 042
  2. PHENOBARBITAL [Concomitant]
     Route: 065
  3. ATORVASTATIN [Concomitant]
     Route: 065
  4. ACENOCOUMAROL [Concomitant]
     Route: 065
  5. ZOLPIDEM [Concomitant]
     Route: 065
  6. ALPRAZOLAM [Concomitant]
     Route: 065

REACTIONS (1)
  - Hypoglycaemia [Recovered/Resolved]
